FAERS Safety Report 15603689 (Version 4)
Quarter: 2025Q3

REPORT INFORMATION
  Report Type: Spontaneous
  Country: SA (occurrence: SA)
  Receive Date: 20181109
  Receipt Date: 20250819
  Transmission Date: 20251021
  Serious: Yes (Hospitalization, Other)
  Sender: PFIZER
  Company Number: SA-MLMSERVICE-20181024-1442553-1

PATIENT
  Age: 49 Year
  Sex: Female

DRUGS (3)
  1. DOXORUBICIN HYDROCHLORIDE [Suspect]
     Active Substance: DOXORUBICIN HYDROCHLORIDE
     Indication: Squamous cell breast carcinoma
  2. TAXOTERE [Suspect]
     Active Substance: DOCETAXEL
     Indication: Squamous cell breast carcinoma
  3. CYCLOPHOSPHAMIDE [Suspect]
     Active Substance: CYCLOPHOSPHAMIDE
     Indication: Squamous cell breast carcinoma

REACTIONS (5)
  - Febrile neutropenia [Recovered/Resolved]
  - Haematotoxicity [Recovered/Resolved]
  - Neuropathy peripheral [Recovered/Resolved]
  - Fatigue [Recovered/Resolved]
  - Mucosal inflammation [Recovered/Resolved]
